FAERS Safety Report 5149801-5 (Version None)
Quarter: 2006Q4

REPORT INFORMATION
  Report Type: 
  Country: None (occurrence: None)
  Receive Date: 20061108
  Receipt Date: 20061025
  Transmission Date: 20070319
  Serious: Yes (Hospitalization)
  Sender: FDA-Public Use
  Company Number: 2006SP003701

PATIENT
  Age: 74 Year
  Sex: Male
  Weight: 68 kg

DRUGS (7)
  1. XOPENEX [Suspect]
     Indication: CHRONIC OBSTRUCTIVE PULMONARY DISEASE
     Dosage: 45 MG/3ML; PRN; INHALATION
     Route: 055
     Dates: start: 20060501
  2. ASPIRIN [Concomitant]
  3. SIMVASTATIN [Concomitant]
  4. TAMSULOSIN HCL [Concomitant]
  5. LOTREL [Concomitant]
  6. FLONASE [Concomitant]
  7. DIFLUCAN [Concomitant]

REACTIONS (9)
  - ASTHENIA [None]
  - DRUG INEFFECTIVE [None]
  - DYSPNOEA [None]
  - FATIGUE [None]
  - HAEMATOCRIT DECREASED [None]
  - HAEMOGLOBIN DECREASED [None]
  - LUNG INFILTRATION [None]
  - PNEUMONIA [None]
  - WHITE BLOOD CELL COUNT INCREASED [None]
